FAERS Safety Report 6248350-0 (Version None)
Quarter: 2009Q2

REPORT INFORMATION
  Report Type: 
  Country: None (occurrence: None)
  Receive Date: 20090629
  Receipt Date: 20090618
  Transmission Date: 20091009
  Serious: Yes (Other)
  Sender: FDA-Public Use
  Company Number: PHHY2009MX24632

PATIENT
  Sex: Female

DRUGS (2)
  1. ACLASTA [Suspect]
     Indication: OSTEOPOROSIS
     Dosage: 5 MG/100 ML, 1 INFUSION PER YEAR
     Dates: start: 20090608
  2. PROZAC [Concomitant]
     Indication: DEPRESSION

REACTIONS (4)
  - HEADACHE [None]
  - PAIN [None]
  - PYREXIA [None]
  - SPEECH DISORDER [None]
